FAERS Safety Report 7876328-X (Version None)
Quarter: 2011Q4

REPORT INFORMATION
  Report Type: 
  Country: None (occurrence: None)
  Receive Date: 20111031
  Receipt Date: 20111024
  Transmission Date: 20120403
  Serious: Yes (Hospitalization, Other)
  Sender: FDA-Public Use
  Company Number: US-MERCK-1108USA03539

PATIENT
  Age: 74 Year
  Sex: Female
  Weight: 80 kg

DRUGS (3)
  1. IVEMEND [Suspect]
     Indication: PROPHYLAXIS OF NAUSEA AND VOMITING
     Dosage: ON DAY ONE OF CHEMOTHERAPY
     Route: 041
     Dates: start: 20110829, end: 20110829
  2. ALOXI [Concomitant]
     Route: 042
     Dates: start: 20110829
  3. DEXAMETHASONE [Concomitant]
     Route: 042
     Dates: start: 20110829

REACTIONS (11)
  - CHEST PAIN [None]
  - BACK PAIN [None]
  - FLUSHING [None]
  - RASH GENERALISED [None]
  - OXYGEN SATURATION DECREASED [None]
  - DYSPNOEA [None]
  - MALAISE [None]
  - PELVIC PAIN [None]
  - NAUSEA [None]
  - BLOOD PRESSURE INCREASED [None]
  - PAIN IN EXTREMITY [None]
